FAERS Safety Report 7413817-6 (Version None)
Quarter: 2011Q2

REPORT INFORMATION
  Report Type: 
  Country: None (occurrence: None)
  Receive Date: 20110413
  Receipt Date: 20110412
  Transmission Date: 20111010
  Serious: No
  Sender: FDA-Public Use
  Company Number: JP-ABBOTT-11P-087-0712387-00

PATIENT
  Sex: Male
  Weight: 73 kg

DRUGS (11)
  1. OLMESARTAN MEDOXOMIL [Concomitant]
     Indication: ESSENTIAL HYPERTENSION
     Dosage: 20 MG DAILY
     Route: 048
     Dates: start: 20101010
  2. SEVOFLURANE [Suspect]
     Indication: MAINTENANCE OF ANAESTHESIA
     Route: 055
     Dates: start: 20101010, end: 20101010
  3. AZELNIDIPINE [Suspect]
     Indication: ESSENTIAL HYPERTENSION
     Dosage: 16 MG DAILY
     Route: 048
     Dates: start: 20101010
  4. ROCURONIUM BROMIDE [Concomitant]
     Indication: HYPOTONIA
     Dosage: 10 MG DAILY
     Route: 042
     Dates: start: 20101010
  5. ARGINAID WATER [Suspect]
     Indication: PRODUCT USED FOR UNKNOWN INDICATION
     Route: 048
     Dates: start: 20101010, end: 20101010
  6. INFUSION SOLUTION [Concomitant]
     Indication: PRODUCT USED FOR UNKNOWN INDICATION
     Dosage: 2900 ML DAILY
  7. NITROUS OXIDE [Concomitant]
     Indication: EPIDURAL ANAESTHESIA
     Route: 055
     Dates: start: 20101010, end: 20101010
  8. OXYGEN [Concomitant]
     Indication: MAINTENANCE OF ANAESTHESIA
  9. BLOOD INFUSION [Concomitant]
     Indication: PRODUCT USED FOR UNKNOWN INDICATION
  10. LIDOCAINE [Concomitant]
     Indication: EPIDURAL ANAESTHESIA
     Dosage: 4 ML/H
     Route: 008
     Dates: start: 20101010
  11. PROPOFOL [Concomitant]
     Indication: INDUCTION OF ANAESTHESIA
     Dosage: 3 MG/KG/HR

REACTIONS (3)
  - ELECTROCARDIOGRAM QT PROLONGED [None]
  - HYPOTENSION [None]
  - HEART RATE DECREASED [None]
